FAERS Safety Report 23358094 (Version 1)
Quarter: 2023Q4

REPORT INFORMATION
  Report Type: Spontaneous
  Country: US (occurrence: None)
  Receive Date: 20231230
  Receipt Date: 20231230
  Transmission Date: 20240110
  Serious: Yes (Hospitalization)
  Sender: FDA-Public Use
  Company Number: None

PATIENT
  Sex: Female

DRUGS (16)
  1. AMBRISENTAN [Suspect]
     Active Substance: AMBRISENTAN
     Indication: Pulmonary arterial hypertension
     Dosage: 10 MG ORAL??TAKE 1 TABLET BY MOUTH EVERY DAY
     Route: 048
     Dates: start: 20230915
  2. ADCIRCA [Concomitant]
     Active Substance: TADALAFIL
  3. ALDACTONE [Concomitant]
     Active Substance: SPIRONOLACTONE
  4. ASPIRIN CHW [Concomitant]
  5. CALCIFEROL DRO [Concomitant]
  6. DIGOXIN SOL [Concomitant]
  7. FENOFIBRATE [Concomitant]
     Active Substance: FENOFIBRATE
  8. FISH OIL [Suspect]
     Active Substance: FISH OIL
  9. FUROSEMIDE [Concomitant]
     Active Substance: FUROSEMIDE
  10. LETAIRIS [Concomitant]
     Active Substance: AMBRISENTAN
  11. NEURONTIN [Suspect]
     Active Substance: GABAPENTIN
  12. OMEPRAZOLE [Concomitant]
     Active Substance: OMEPRAZOLE
  13. PRAVASTATIN [Concomitant]
     Active Substance: PRAVASTATIN
  14. SILDENAFIL [Concomitant]
     Active Substance: SILDENAFIL
  15. VITAMIN E [Suspect]
     Active Substance: .ALPHA.-TOCOPHEROL
  16. ZOLOFT [Suspect]
     Active Substance: SERTRALINE HYDROCHLORIDE

REACTIONS (1)
  - Pneumonia [None]
